FAERS Safety Report 8850659 (Version 1)
Quarter: 2012Q4

REPORT INFORMATION
  Report Type: 
  Country: NZ (occurrence: NZ)
  Receive Date: 20121019
  Receipt Date: 20121019
  Transmission Date: 20130627
  Serious: Yes (Life-Threatening)
  Sender: FDA-Public Use
  Company Number: NZ-ASTRAZENECA-2012SE79696

PATIENT
  Age: 46 Year
  Sex: Female

DRUGS (3)
  1. OMEPRAZOLE [Suspect]
     Route: 048
  2. CITALOPRAM [Interacting]
     Route: 065
  3. OLANZAPINE [Interacting]
     Route: 065

REACTIONS (3)
  - Drug interaction [Unknown]
  - Convulsion [Unknown]
  - Hyponatraemia [Unknown]
